FAERS Safety Report 8091984-1 (Version None)
Quarter: 2012Q1

REPORT INFORMATION
  Report Type: 
  Country: None (occurrence: None)
  Receive Date: 20120129
  Receipt Date: 20111115
  Transmission Date: 20120608
  Serious: Yes (Other)
  Sender: FDA-Public Use
  Company Number: US-ABBOTT-11P-163-0868816-00

PATIENT
  Sex: Female

DRUGS (4)
  1. CALCIUM [Concomitant]
     Indication: MINERAL SUPPLEMENTATION
  2. HUMIRA [Suspect]
     Indication: RHEUMATOID ARTHRITIS
     Route: 058
     Dates: start: 20080801, end: 20110401
  3. UNKNOWN VITAMINS [Concomitant]
     Indication: VITAMIN SUPPLEMENTATION
  4. UNKNOWN MEDICATIONS [Concomitant]
     Indication: CARDIAC DISORDER

REACTIONS (5)
  - NASOPHARYNGITIS [None]
  - MOBILITY DECREASED [None]
  - COUGH [None]
  - RHEUMATOID ARTHRITIS [None]
  - LATENT TUBERCULOSIS [None]
